FAERS Safety Report 6450819-0 (Version None)
Quarter: 2009Q4

REPORT INFORMATION
  Report Type: 
  Country: None (occurrence: None)
  Receive Date: 20091123
  Receipt Date: 20091110
  Transmission Date: 20100525
  Serious: Yes (Disabling)
  Sender: FDA-Public Use
  Company Number: JP-ASTRAZENECA-2009SE20225

PATIENT
  Age: 464 Month
  Sex: Female
  Weight: 94 kg

DRUGS (14)
  1. SEROQUEL [Suspect]
     Indication: SCHIZOPHRENIA
     Route: 048
     Dates: start: 20081001, end: 20090603
  2. RISPERDAL [Concomitant]
     Indication: SCHIZOPHRENIA
  3. CONSTAN [Concomitant]
     Indication: SCHIZOPHRENIA
  4. TASMOLIN [Concomitant]
     Indication: SCHIZOPHRENIA
  5. RISUMIC [Concomitant]
     Indication: SCHIZOPHRENIA
     Route: 048
  6. SELBEX [Concomitant]
     Indication: GASTRITIS
     Route: 048
  7. EURODIN [Concomitant]
     Indication: INSOMNIA
  8. VEGETAMIN [Concomitant]
     Indication: SCHIZOPHRENIA
  9. ROHYPNOL [Concomitant]
     Indication: INSOMNIA
  10. LODOPIN [Concomitant]
     Indication: SCHIZOPHRENIA
  11. QUAZEPAM [Concomitant]
     Indication: INSOMNIA
     Route: 048
  12. THEO-DUR [Concomitant]
     Indication: ASTHMA
     Route: 048
  13. HOKUNALIN [Concomitant]
     Indication: ASTHMA
  14. LENDORMIN [Concomitant]
     Indication: INSOMNIA
     Route: 048

REACTIONS (3)
  - DIABETES MELLITUS [None]
  - OBESITY [None]
  - SLEEP APNOEA SYNDROME [None]
